FAERS Safety Report 8138872-X (Version None)
Quarter: 2012Q1

REPORT INFORMATION
  Report Type: 
  Country: None (occurrence: None)
  Receive Date: 20120215
  Receipt Date: 20120203
  Transmission Date: 20120608
  Serious: Yes (Hospitalization)
  Sender: FDA-Public Use
  Company Number: US-UCBSA-029540

PATIENT
  Age: 57 Year
  Sex: Female
  Weight: 90.71 kg

DRUGS (13)
  1. ACETAMINOPHEN [Concomitant]
     Indication: CROHN'S DISEASE
  2. BENICAR [Concomitant]
     Indication: BLOOD PRESSURE
     Route: 048
  3. COUMADIN [Concomitant]
     Indication: ANTICOAGULANT THERAPY
     Route: 048
  4. ACIPHEX [Concomitant]
     Indication: ANTACID THERAPY
     Route: 048
  5. NASACORT AQ [Concomitant]
     Indication: HYPERSENSITIVITY
     Dosage: 2 PUFFS/NOSTRIL
     Route: 045
  6. PROMETHAZINE [Concomitant]
     Indication: THERAPEUTIC EMESIS
     Dosage: 50 MG
     Route: 048
  7. CIMZIA [Suspect]
     Indication: CROHN'S DISEASE
     Route: 058
     Dates: start: 20090701
  8. MESALAMINE [Concomitant]
     Dates: start: 20080210
  9. METOCLOPRAMIDE [Concomitant]
     Indication: BLOOD PRESSURE
     Route: 048
  10. TRAZODONE HCL [Concomitant]
     Indication: ANTIDEPRESSANT THERAPY
     Route: 048
  11. CLONIDINE [Concomitant]
     Indication: BLOOD PRESSURE
     Dosage: 0.1 MG
     Route: 048
  12. ASTEPRO [Concomitant]
     Indication: ANTIALLERGIC THERAPY
     Dosage: 0.15% 2 PUFFS/NOSTRIL
     Route: 045
  13. MESALAMINE [Concomitant]
     Indication: CROHN'S DISEASE
     Dates: start: 20060515, end: 20080201

REACTIONS (1)
  - BRONCHITIS [None]
